FAERS Safety Report 10862026 (Version 1)
Quarter: 2015Q1

REPORT INFORMATION
  Report Type: Spontaneous
  Country: BR (occurrence: BR)
  Receive Date: 20150224
  Receipt Date: 20150224
  Transmission Date: 20150721
  Serious: Yes (Death)
  Sender: FDA-Public Use
  Company Number: PHHY2015BR021328

PATIENT
  Age: 95 Year
  Sex: Male
  Weight: 62 kg

DRUGS (1)
  1. CATAFLAM [Suspect]
     Active Substance: DICLOFENAC POTASSIUM
     Indication: PAIN IN EXTREMITY
     Dosage: UNK OT, TID
     Route: 062

REACTIONS (5)
  - Ligament sprain [Unknown]
  - Drug ineffective [Unknown]
  - Pain in extremity [Unknown]
  - Incorrect route of drug administration [Unknown]
  - Cardio-respiratory arrest [Fatal]

NARRATIVE: CASE EVENT DATE: 20100925
